FAERS Safety Report 9509987 (Version 1)
Quarter: 2013Q3

REPORT INFORMATION
  Report Type: Spontaneous
  Country: US (occurrence: US)
  Receive Date: 20130909
  Receipt Date: 20130909
  Transmission Date: 20140515
  Serious: No
  Sender: FDA-Public Use
  Company Number: US-BRISTOL-MYERS SQUIBB COMPANY-18880799

PATIENT
  Age: 12 Year
  Sex: Female

DRUGS (4)
  1. ABILIFY [Suspect]
     Indication: ANXIETY
     Dates: start: 201304
  2. ABILIFY [Suspect]
     Indication: ATTENTION DEFICIT/HYPERACTIVITY DISORDER
     Dates: start: 201304
  3. ABILIFY [Suspect]
     Indication: DEPRESSION
     Dates: start: 201304
  4. ABILIFY [Suspect]
     Indication: BIPOLAR DISORDER
     Dates: start: 201304

REACTIONS (2)
  - Feeling abnormal [Unknown]
  - Abnormal behaviour [Unknown]
